FAERS Safety Report 25802259 (Version 1)
Quarter: 2025Q3

REPORT INFORMATION
  Report Type: Other
  Country: CA (occurrence: CA)
  Receive Date: 20250915
  Receipt Date: 20250915
  Transmission Date: 20251021
  Serious: Yes (Other)
  Sender: APOTEX
  Company Number: CA-PGRTD-E2B_07999220

PATIENT
  Age: 61 Year
  Sex: Male

DRUGS (2)
  1. IMATINIB [Suspect]
     Active Substance: IMATINIB
     Indication: Chronic myeloid leukaemia
     Dosage: 1 EVERY 1 DAYS
     Route: 065
  2. IMATINIB [Suspect]
     Active Substance: IMATINIB
     Dosage: 1 EVERY 1 DAYS
     Route: 065

REACTIONS (5)
  - Atrioventricular block second degree [Unknown]
  - Thrombocytopenia [Unknown]
  - Framingham risk score [Unknown]
  - Gout [Unknown]
  - Drug ineffective [Unknown]
